FAERS Safety Report 11616539 (Version 1)
Quarter: 2015Q4

REPORT INFORMATION
  Report Type: Spontaneous
  Country: FR (occurrence: FR)
  Receive Date: 20151009
  Receipt Date: 20151009
  Transmission Date: 20160304
  Serious: Yes (Hospitalization)
  Sender: FDA-Public Use
  Company Number: FR-009507513-1510FRA004130

PATIENT
  Age: 22 Year
  Sex: Female

DRUGS (1)
  1. NEXPLANON [Suspect]
     Active Substance: ETONOGESTREL
     Indication: CONTRACEPTION
     Dosage: UNK
     Route: 059
     Dates: start: 20141105

REACTIONS (17)
  - Neuroendocrine tumour [Unknown]
  - Micturition urgency [Unknown]
  - Abdominal pain lower [Unknown]
  - Colon operation [Unknown]
  - Ovarian cystectomy [Unknown]
  - Hot flush [Unknown]
  - Flatulence [Unknown]
  - Vaginal discharge [Unknown]
  - Breast discomfort [Not Recovered/Not Resolved]
  - Ovarian cyst [Unknown]
  - Diarrhoea [Unknown]
  - Depressed mood [Unknown]
  - Vulvovaginal mycotic infection [Unknown]
  - Loss of libido [Unknown]
  - Appendicectomy [Unknown]
  - Affect lability [Unknown]
  - Anxiety [Unknown]

NARRATIVE: CASE EVENT DATE: 20150712
